FAERS Safety Report 8048505-9 (Version None)
Quarter: 2012Q1

REPORT INFORMATION
  Report Type: 
  Country: None (occurrence: None)
  Receive Date: 20120117
  Receipt Date: 20120110
  Transmission Date: 20120608
  Serious: Yes (Hospitalization, Other)
  Sender: FDA-Public Use
  Company Number: US-SANOFI-AVENTIS-2012SA001919

PATIENT
  Age: 36 Year
  Sex: Female

DRUGS (1)
  1. APIDRA [Suspect]
     Dosage: PUMP
     Route: 058
     Dates: start: 20060101

REACTIONS (2)
  - PRODUCT QUALITY ISSUE [None]
  - DIABETIC KETOACIDOSIS [None]
